FAERS Safety Report 18037606 (Version 2)
Quarter: 2020Q4

REPORT INFORMATION
  Report Type: Spontaneous
  Country: US (occurrence: US)
  Receive Date: 20200717
  Receipt Date: 20201112
  Transmission Date: 20210113
  Serious: No
  Sender: FDA-Public Use
  Company Number: US-SA-2020SA178735

PATIENT

DRUGS (2)
  1. KEVZARA [Suspect]
     Active Substance: SARILUMAB
     Indication: RHEUMATOID ARTHRITIS
     Dosage: 200 MG, Q4W
     Route: 058
     Dates: start: 20180424
  2. KEVZARA [Suspect]
     Active Substance: SARILUMAB
     Dosage: 200 MG, Q4W
     Route: 058
     Dates: start: 20190515

REACTIONS (3)
  - Pain [Unknown]
  - Product use issue [Unknown]
  - Spinal operation [Unknown]

NARRATIVE: CASE EVENT DATE: 20180424
